FAERS Safety Report 21638211 (Version 1)
Quarter: 2022Q4

REPORT INFORMATION
  Report Type: Spontaneous
  Country: HR (occurrence: HR)
  Receive Date: 20221124
  Receipt Date: 20221124
  Transmission Date: 20230112
  Serious: Yes (Life-Threatening, Other)
  Sender: FDA-Public Use
  Company Number: None

PATIENT
  Sex: Female

DRUGS (4)
  1. ANASTROZOLE [Suspect]
     Active Substance: ANASTROZOLE
     Dosage: 2 BOXES
     Route: 048
     Dates: start: 20221019, end: 20221019
  2. DICLOFENAC [Suspect]
     Active Substance: DICLOFENAC
     Dosage: 1 DF= 1 TABLET
     Route: 048
     Dates: start: 20221019, end: 20221019
  3. SERTRALINE HYDROCHLORIDE [Suspect]
     Active Substance: SERTRALINE HYDROCHLORIDE
     Dosage: 1 BOX
     Route: 048
     Dates: start: 20221019, end: 20221019
  4. ZOLPIDEM TARTRATE [Suspect]
     Active Substance: ZOLPIDEM TARTRATE
     Dosage: 1 DF= 1 TABLET
     Route: 048
     Dates: start: 20221019, end: 20221019

REACTIONS (2)
  - Suicide attempt [Unknown]
  - Intentional overdose [Unknown]

NARRATIVE: CASE EVENT DATE: 20221019
